FAERS Safety Report 16431976 (Version 4)
Quarter: 2025Q1

REPORT INFORMATION
  Report Type: Spontaneous
  Country: US (occurrence: US)
  Receive Date: 20190614
  Receipt Date: 20250325
  Transmission Date: 20250408
  Serious: Yes (Hospitalization, Other)
  Sender: STRIDES
  Company Number: US-STRIDES ARCOLAB LIMITED-2019SP004994

PATIENT
  Age: 58 Year
  Sex: Male

DRUGS (13)
  1. GABAPENTIN [Interacting]
     Active Substance: GABAPENTIN
     Indication: Back pain
     Route: 065
  2. GABAPENTIN [Interacting]
     Active Substance: GABAPENTIN
  3. GABAPENTIN [Interacting]
     Active Substance: GABAPENTIN
  4. MS CONTIN [Interacting]
     Active Substance: MORPHINE SULFATE
     Indication: Back pain
     Route: 065
  5. PERCOCET [Interacting]
     Active Substance: ACETAMINOPHEN\OXYCODONE HYDROCHLORIDE
     Indication: Back pain
     Route: 065
  6. METFORMIN [Concomitant]
     Active Substance: METFORMIN HYDROCHLORIDE
     Indication: Type 2 diabetes mellitus
     Route: 065
  7. INSULIN NOS [Concomitant]
     Active Substance: INSULIN NOS
     Indication: Type 2 diabetes mellitus
     Route: 065
  8. OMEPRAZOLE [Concomitant]
     Active Substance: OMEPRAZOLE
     Indication: Gastrooesophageal reflux disease
     Route: 065
  9. OMEPRAZOLE [Concomitant]
     Active Substance: OMEPRAZOLE
     Route: 048
  10. VALSARTAN [Concomitant]
     Active Substance: VALSARTAN
     Indication: Hypertension
     Route: 048
  11. LEVOTHYROXINE [Concomitant]
     Active Substance: LEVOTHYROXINE
     Indication: Hypothyroidism
     Route: 065
  12. LEVOTHYROXINE [Concomitant]
     Active Substance: LEVOTHYROXINE
     Route: 048
  13. NIACIN [Concomitant]
     Active Substance: NIACIN
     Indication: Hyperlipidaemia
     Route: 065

REACTIONS (23)
  - Encephalopathy [Recovering/Resolving]
  - Acute respiratory failure [Recovered/Resolved]
  - Respiratory acidosis [Recovered/Resolved]
  - Acute kidney injury [Recovering/Resolving]
  - Pulmonary embolism [Recovering/Resolving]
  - Obesity [Unknown]
  - Pneumonia [Recovering/Resolving]
  - Mental status changes [Recovering/Resolving]
  - Drug withdrawal syndrome [Recovering/Resolving]
  - Depressed level of consciousness [Recovering/Resolving]
  - Lethargy [Recovering/Resolving]
  - Psychomotor hyperactivity [Recovering/Resolving]
  - Akathisia [Recovering/Resolving]
  - Miosis [Recovering/Resolving]
  - Breath sounds abnormal [Recovering/Resolving]
  - Confusional state [Recovering/Resolving]
  - Somnolence [Recovering/Resolving]
  - Agitation [Recovering/Resolving]
  - Pyrexia [Recovering/Resolving]
  - Drug interaction [Unknown]
  - Overdose [Recovered/Resolved]
  - Medication error [Recovered/Resolved]
  - Toxicity to various agents [Recovered/Resolved]
